FAERS Safety Report 6379816-0 (Version None)
Quarter: 2009Q3

REPORT INFORMATION
  Report Type: 
  Country: None (occurrence: None)
  Receive Date: 20090924
  Receipt Date: 20090924
  Transmission Date: 20100115
  Serious: Yes (Hospitalization)
  Sender: FDA-Public Use
  Company Number: None

PATIENT
  Sex: Male

DRUGS (1)
  1. BACTRIM DS [Suspect]
     Indication: CELLULITIS
     Dosage: 1 TABLET TWICE DAILY PO
     Route: 048

REACTIONS (3)
  - PAIN [None]
  - PYREXIA [None]
  - RASH MACULO-PAPULAR [None]
